FAERS Safety Report 15481311 (Version 1)
Quarter: 2018Q4

REPORT INFORMATION
  Report Type: Spontaneous
  Country: US (occurrence: US)
  Receive Date: 20181010
  Receipt Date: 20181010
  Transmission Date: 20190205
  Serious: No
  Sender: FDA-Public Use
  Company Number: US-HORIZON-KRY-0318-2018

PATIENT
  Age: 63 Year
  Sex: Male

DRUGS (1)
  1. KRYSTEXXA [Suspect]
     Active Substance: PEGLOTICASE
     Indication: GOUT
     Dosage: 8MG EVERY 2 WEEKS
     Route: 042
     Dates: start: 20180823

REACTIONS (3)
  - Lacrimation increased [Unknown]
  - Gout [Unknown]
  - Eye pain [Unknown]

NARRATIVE: CASE EVENT DATE: 2018
